FAERS Safety Report 6062491-2 (Version None)
Quarter: 2009Q1

REPORT INFORMATION
  Report Type: 
  Country: None (occurrence: None)
  Receive Date: 20090129
  Receipt Date: 20090122
  Transmission Date: 20090719
  Serious: No
  Sender: FDA-Public Use
  Company Number: MSTR-NO-0806S-0029

PATIENT
  Sex: Male
  Weight: 42 kg

DRUGS (4)
  1. METASTRON [Suspect]
     Indication: METASTASES TO BONE
     Dosage: SINGLE DOSE, I.V.
     Route: 042
     Dates: start: 20080319, end: 20080319
  2. METASTRON [Suspect]
     Indication: METASTATIC PAIN
     Dosage: SINGLE DOSE, I.V.
     Route: 042
     Dates: start: 20080319, end: 20080319
  3. OXYCODONE HYDROCHLORIDE [Concomitant]
  4. LOXOPROFEN SODIUM [Concomitant]

REACTIONS (1)
  - DISEASE PROGRESSION [None]
